FAERS Safety Report 6377100-2 (Version None)
Quarter: 2009Q3

REPORT INFORMATION
  Report Type: 
  Country: None (occurrence: None)
  Receive Date: 20090923
  Receipt Date: 20090923
  Transmission Date: 20100115
  Serious: Yes (Other)
  Sender: FDA-Public Use
  Company Number: None

PATIENT
  Age: 66 Year
  Sex: Female
  Weight: 96.8 kg

DRUGS (12)
  1. COUMADIN [Suspect]
     Indication: DEEP VEIN THROMBOSIS
     Dosage: 40 MG WEEKLY PO 047
     Route: 048
     Dates: start: 20090817, end: 20090918
  2. PROTONIX [Concomitant]
  3. CETIRIZINE HCL [Concomitant]
  4. OXAPROZIN [Concomitant]
  5. BACTRIM [Concomitant]
  6. GEMFIBROZIL [Concomitant]
  7. OXYBUTYNIN CHLORIDE [Concomitant]
  8. FISH OIL [Concomitant]
  9. GINSENG [Concomitant]
  10. VITAMIN E [Concomitant]
  11. ALOE VERA JUICE [Concomitant]
  12. GARLIC TABLETS [Concomitant]

REACTIONS (4)
  - ERYTHEMA [None]
  - INTERNATIONAL NORMALISED RATIO INCREASED [None]
  - PRURITUS [None]
  - RASH [None]
